FAERS Safety Report 21089623 (Version 1)
Quarter: 2022Q3

REPORT INFORMATION
  Report Type: Spontaneous
  Country: US (occurrence: US)
  Receive Date: 20220715
  Receipt Date: 20220715
  Transmission Date: 20221027
  Serious: No
  Sender: FDA-Public Use
  Company Number: US-TEVA-2022-US-2048254

PATIENT
  Sex: Female
  Weight: 58.9 kg

DRUGS (1)
  1. ESCITALOPRAM [Suspect]
     Active Substance: ESCITALOPRAM OXALATE
     Indication: Product used for unknown indication
     Route: 065

REACTIONS (7)
  - Hypoaesthesia [Unknown]
  - Muscle tightness [Unknown]
  - Anxiety [Unknown]
  - Pruritus [Unknown]
  - Pollakiuria [Unknown]
  - Burning sensation [Unknown]
  - Headache [Unknown]
